FAERS Safety Report 7919446-X (Version None)
Quarter: 2011Q4

REPORT INFORMATION
  Report Type: 
  Country: None (occurrence: None)
  Receive Date: 20111117
  Receipt Date: 20111107
  Transmission Date: 20120403
  Serious: Yes (Other)
  Sender: FDA-Public Use
  Company Number: GB-RANBAXY-2011R1-50285

PATIENT
  Age: 49 Year
  Sex: Male
  Weight: 100 kg

DRUGS (7)
  1. BUSPIRONE [Concomitant]
     Indication: ANXIETY
     Dosage: 10 MG, QD
     Route: 048
  2. DIAZEPAM [Concomitant]
     Indication: DRUG DEPENDENCE
     Dosage: 10 MG, TID
     Route: 048
  3. PROPRANOLOL [Concomitant]
     Indication: ANXIETY
     Dosage: 40 MG, QD
     Route: 048
  4. RISPERIDONE [Suspect]
     Indication: AFFECTIVE DISORDER
     Dosage: 1 MG, BID
     Route: 048
     Dates: start: 20110901, end: 20110930
  5. ZOPICLONE [Concomitant]
     Indication: SLEEP DISORDER
     Dosage: UNK
     Route: 048
  6. FLUOXETINE HCL [Concomitant]
     Indication: DEPRESSION
     Dosage: 60 MG, QD
     Route: 048
  7. FLUOXETINE HCL [Concomitant]
     Indication: OBSESSIVE-COMPULSIVE DISORDER

REACTIONS (1)
  - NOCTURIA [None]
